FAERS Safety Report 9813619 (Version 3)
Quarter: 2020Q2

REPORT INFORMATION
  Report Type: Report from Study
  Country: FR (occurrence: FR)
  Receive Date: 20140113
  Receipt Date: 20200513
  Transmission Date: 20200714
  Serious: Yes (Hospitalization, Other)
  Sender: FDA-Public Use
  Company Number: FR-BIOMARINP-000266

PATIENT
  Age: 5 Year
  Sex: Male
  Weight: 13.5 kg

DRUGS (10)
  1. PARACETAMOL [Concomitant]
     Active Substance: ACETAMINOPHEN
     Indication: PREMEDICATION
     Dosage: 1 DOSAGE FORM
     Route: 048
  2. NAGLAZYME [Suspect]
     Active Substance: GALSULFASE
     Indication: MUCOPOLYSACCHARIDOSIS VI
     Dosage: 15MG,QW
     Route: 041
     Dates: start: 20070201, end: 20080610
  3. WARFARIN [Concomitant]
     Active Substance: WARFARIN
     Indication: PRODUCT USED FOR UNKNOWN INDICATION
     Route: 048
     Dates: start: 20080612
  4. NAGLAZYME [Suspect]
     Active Substance: GALSULFASE
     Dosage: UNK
     Route: 041
     Dates: end: 20080923
  5. NAGLAZYME [Suspect]
     Active Substance: GALSULFASE
     Dosage: 0.5 MG/KG, UNK
     Route: 041
  6. DOLIPRANE [Concomitant]
     Active Substance: ACETAMINOPHEN
     Indication: PAIN
     Dates: start: 200806
  7. HYDROXYZINE [Concomitant]
     Active Substance: HYDROXYZINE HYDROCHLORIDE
     Indication: PREMEDICATION
     Dosage: 14 MILLIGRAM
  8. NAGLAZYME [Suspect]
     Active Substance: GALSULFASE
     Dosage: UNK
     Route: 041
     Dates: start: 200806, end: 200808
  9. NAGLAZYME [Suspect]
     Active Substance: GALSULFASE
     Dosage: .3MG/KG,QW
     Route: 041
     Dates: start: 20090629
  10. NAGLAZYME [Suspect]
     Active Substance: GALSULFASE
     Dosage: .6MG/KG,QW
     Route: 041

REACTIONS (3)
  - Proteinuria [Recovered/Resolved]
  - Nephritic syndrome [Recovering/Resolving]
  - Nephrotic syndrome [Recovering/Resolving]

NARRATIVE: CASE EVENT DATE: 20080617
